FAERS Safety Report 19221912 (Version 1)
Quarter: 2021Q2

REPORT INFORMATION
  Report Type: Spontaneous
  Country: CA (occurrence: CA)
  Receive Date: 20210505
  Receipt Date: 20210505
  Transmission Date: 20210717
  Serious: Yes (Other)
  Sender: FDA-Public Use
  Company Number: CA-ORGANON-O2105CAN000260

PATIENT
  Sex: Female

DRUGS (2)
  1. ORGALUTRAN [Suspect]
     Active Substance: GANIRELIX ACETATE
     Indication: ASSISTED FERTILISATION
     Dosage: UNK
     Dates: start: 2019
  2. PUREGON [FOLLITROPIN BETA] [Suspect]
     Active Substance: FOLLITROPIN BETA
     Indication: ASSISTED FERTILISATION
     Dosage: UNK
     Dates: start: 2019

REACTIONS (1)
  - Failed in vitro fertilisation [Unknown]

NARRATIVE: CASE EVENT DATE: 2019
